FAERS Safety Report 15691198 (Version 2)
Quarter: 2019Q1

REPORT INFORMATION
  Report Type: Spontaneous
  Country: FR (occurrence: FR)
  Receive Date: 20181205
  Receipt Date: 20190109
  Transmission Date: 20190417
  Serious: Yes (Death)
  Sender: FDA-Public Use
  Company Number: FR-ABBVIE-18K-056-2473835-00

PATIENT
  Age: 63 Year
  Sex: Female

DRUGS (6)
  1. VENCLYXTO [Suspect]
     Active Substance: VENETOCLAX
     Dosage: DOSE FLUCTUATING BETWEEN 1200 AND 800 MG / DAY
     Route: 048
     Dates: end: 20180927
  2. PANTOPRAZOLE [Concomitant]
     Active Substance: PANTOPRAZOLE
     Indication: PRODUCT USED FOR UNKNOWN INDICATION
  3. LAMALINE (ATROPA BELLADONNA EXTRACT\CAFFEINE\PAPAVER SOMNIFERUM TINCTURE\PARACETAMOL) [Concomitant]
     Active Substance: ACETAMINOPHEN\BELLADONNA LEAF\CAFFEINE\OPIUM
     Indication: PRODUCT USED FOR UNKNOWN INDICATION
  4. GABAPENTIN 100 [Concomitant]
     Indication: PRODUCT USED FOR UNKNOWN INDICATION
  5. VENCLYXTO [Suspect]
     Active Substance: VENETOCLAX
     Indication: ACUTE MYELOID LEUKAEMIA
     Route: 048
     Dates: start: 20180717
  6. CALCITONIN SALMON. [Concomitant]
     Active Substance: CALCITONIN SALMON
     Indication: PRODUCT USED FOR UNKNOWN INDICATION

REACTIONS (3)
  - Off label use [Unknown]
  - Intentional product misuse [Unknown]
  - Death [Fatal]
